FAERS Safety Report 5374516-8 (Version None)
Quarter: 2007Q2

REPORT INFORMATION
  Report Type: 
  Country: None (occurrence: None)
  Receive Date: 20070627
  Receipt Date: 20060502
  Transmission Date: 20071010
  Serious: Yes (Other)
  Sender: FDA-Public Use
  Company Number: 446408

PATIENT
  Age: 70 Year
  Sex: Female
  Weight: 72.8 kg

DRUGS (2)
  1. XELODA [Suspect]
     Indication: OVARIAN CANCER
     Dosage: 900 MG 2 PER DAY ORAL
     Route: 048
     Dates: start: 20060407, end: 20060421
  2. GEMCITABINE [Suspect]
     Indication: OVARIAN CANCER
     Dosage: 1080 MG 2 PER 3 WEEK INTRAVENOUS
     Route: 042
     Dates: start: 20060407, end: 20060414

REACTIONS (1)
  - NEUTROPHIL COUNT DECREASED [None]
